FAERS Safety Report 7811079-9 (Version None)
Quarter: 2011Q4

REPORT INFORMATION
  Report Type: 
  Country: None (occurrence: None)
  Receive Date: 20111013
  Receipt Date: 20111006
  Transmission Date: 20120403
  Serious: Yes (Death)
  Sender: FDA-Public Use
  Company Number: GB-UCBSA-038163

PATIENT
  Sex: Female

DRUGS (2)
  1. ZONISAMIDE [Concomitant]
  2. VIMPAT [Suspect]
     Indication: EPILEPSY

REACTIONS (1)
  - SUDDEN UNEXPLAINED DEATH IN EPILEPSY [None]
